FAERS Safety Report 19441631 (Version 1)
Quarter: 2021Q2

REPORT INFORMATION
  Report Type: Spontaneous
  Country: US (occurrence: US)
  Receive Date: 20210617
  Receipt Date: 20210617
  Transmission Date: 20210717
  Serious: Yes (Hospitalization)
  Sender: FDA-Public Use
  Company Number: None

PATIENT
  Sex: Female

DRUGS (36)
  1. AMOXICILLIN. [Concomitant]
     Active Substance: AMOXICILLIN
  2. BENZONATATE. [Concomitant]
     Active Substance: BENZONATATE
  3. CALC ACETATE [Concomitant]
     Active Substance: CALCIUM ACETATE
  4. CLINDAMYCIN VAG CRE [Concomitant]
  5. DILTIAZEM. [Concomitant]
     Active Substance: DILTIAZEM
  6. FOLIC ACID. [Concomitant]
     Active Substance: FOLIC ACID
  7. NIFEDIPINE. [Concomitant]
     Active Substance: NIFEDIPINE
  8. RENVELA [Concomitant]
     Active Substance: SEVELAMER CARBONATE
  9. CARVEDILOL. [Concomitant]
     Active Substance: CARVEDILOL
  10. CEFDINIR. [Concomitant]
     Active Substance: CEFDINIR
  11. CLONIDINE DIS [Concomitant]
  12. MIRTAZAPINE ODT [Concomitant]
     Active Substance: MIRTAZAPINE
  13. PREDNISONE. [Concomitant]
     Active Substance: PREDNISONE
  14. SEVELAMER [Concomitant]
     Active Substance: SEVELAMER
  15. VITAMIN B12 [Concomitant]
     Active Substance: CYANOCOBALAMIN
  16. APAP/CODEINE [Concomitant]
     Active Substance: ACETAMINOPHEN\CODEINE PHOSPHATE
  17. LACTULOSE. [Concomitant]
     Active Substance: LACTULOSE
  18. NYSTATIN. [Concomitant]
     Active Substance: NYSTATIN
  19. NARCAN [Concomitant]
     Active Substance: NALOXONE HYDROCHLORIDE
  20. METOCLOPRAM [Concomitant]
     Active Substance: METOCLOPRAMIDE
  21. POT CHLORIDE ER [Concomitant]
  22. TRAMADOL HCL [Concomitant]
     Active Substance: TRAMADOL HYDROCHLORIDE
  23. ALLOPURINOL. [Concomitant]
     Active Substance: ALLOPURINOL
  24. GABAPENTIN. [Concomitant]
     Active Substance: GABAPENTIN
  25. MINOXIDIL. [Concomitant]
     Active Substance: MINOXIDIL
  26. OXYCODONE [Concomitant]
     Active Substance: OXYCODONE
  27. AZITHROMYCIN ANHYDROUS. [Concomitant]
     Active Substance: AZITHROMYCIN ANHYDROUS
  28. LEVETIRACETA [Concomitant]
     Active Substance: LEVETIRACETAM
  29. LISINOPRIL. [Concomitant]
     Active Substance: LISINOPRIL
  30. PREGABALIN. [Concomitant]
     Active Substance: PREGABALIN
  31. ILARIS [Suspect]
     Active Substance: CANAKINUMAB
     Indication: PYREXIA
     Dosage: 150MG Q4W SQ
     Route: 058
  32. CRPROHEPTAD [Concomitant]
  33. ERYTHROMYCIN ETH [Concomitant]
  34. KETOCONAZOLE SHA [Concomitant]
  35. ONDANSETRON [Concomitant]
     Active Substance: ONDANSETRON
  36. SE?NATAL [Concomitant]
     Active Substance: .ALPHA.-TOCOPHEROL ACETATE, DL-\CALCIUM CARBONATE\CUPRIC OXIDE\CYANOCOBALAMIN\DOCUSATE SODIUM\ERGOCALCIFEROL\FERROUS FUMARATE\FOLIC ACID\NIACIN\NIACINAMIDE ASCORBATE\POTASSIUM IODIDE\PYRIDOXINE HYDROCHLORIDE\RIBOFLAVIN\THIAMINE MONONITRATE\VITAMIN A ACETATE\ZINC OXIDE

REACTIONS (1)
  - Hospitalisation [None]
